FAERS Safety Report 18140616 (Version 4)
Quarter: 2021Q4

REPORT INFORMATION
  Report Type: Spontaneous
  Country: US (occurrence: US)
  Receive Date: 20200812
  Receipt Date: 20211210
  Transmission Date: 20220304
  Serious: Yes (Other)
  Sender: FDA-Public Use
  Company Number: US-PFIZER INC-2020307330

PATIENT
  Age: 39 Year
  Sex: Female

DRUGS (3)
  1. PHENYTOIN SODIUM [Suspect]
     Active Substance: PHENYTOIN SODIUM
     Indication: Seizure
     Dosage: UNK
  2. PHENYTOIN SODIUM [Suspect]
     Active Substance: PHENYTOIN SODIUM
     Indication: Epilepsy
  3. PHENYTOIN SODIUM [Suspect]
     Active Substance: PHENYTOIN SODIUM
     Indication: Generalised tonic-clonic seizure

REACTIONS (4)
  - Drug ineffective [Unknown]
  - Spinal fracture [Unknown]
  - Memory impairment [Unknown]
  - Intentional product use issue [Unknown]
